FAERS Safety Report 4880035-5 (Version None)
Quarter: 2006Q1

REPORT INFORMATION
  Report Type: 
  Country: None (occurrence: None)
  Receive Date: 20060113
  Receipt Date: 20051115
  Transmission Date: 20060701
  Serious: Yes (Hospitalization)
  Sender: FDA-Public Use
  Company Number: IT-SANOFI-SYNTHELABO-A06200500266

PATIENT
  Age: 74 Year
  Sex: Male

DRUGS (3)
  1. ELOXATIN [Suspect]
     Indication: RECTAL CANCER STAGE III
     Route: 041
     Dates: start: 20050330, end: 20051003
  2. FLUOROURACIL [Concomitant]
     Indication: RECTAL CANCER STAGE III
     Route: 042
     Dates: start: 20050330, end: 20051003
  3. LEUCOVORINE [Concomitant]
     Indication: RECTAL CANCER STAGE III
     Route: 065
     Dates: start: 20050330, end: 20051003

REACTIONS (7)
  - BRONCHOSPASM [None]
  - CARDIAC FAILURE [None]
  - COUGH [None]
  - DRUG HYPERSENSITIVITY [None]
  - DYSPNOEA [None]
  - INTERSTITIAL LUNG DISEASE [None]
  - RENAL FAILURE [None]
